FAERS Safety Report 9263704 (Version 1)
Quarter: 2013Q2

REPORT INFORMATION
  Report Type: Spontaneous
  Country: US (occurrence: None)
  Receive Date: 20130429
  Receipt Date: 20130429
  Transmission Date: 20140414
  Serious: Yes (Other)
  Sender: FDA-Public Use
  Company Number: None

PATIENT
  Age: 71 Year
  Sex: Female
  Weight: 81.65 kg

DRUGS (1)
  1. PANTOPRAZOLE [Suspect]
     Indication: GASTROOESOPHAGEAL REFLUX DISEASE
     Dosage: 1
     Route: 048
     Dates: start: 20130228, end: 20130425

REACTIONS (14)
  - Heart rate increased [None]
  - Dyspnoea [None]
  - Abdominal distension [None]
  - Vision blurred [None]
  - Blister [None]
  - Fatigue [None]
  - Muscle spasms [None]
  - Pain [None]
  - Tremor [None]
  - Hyperhidrosis [None]
  - Gait disturbance [None]
  - Local swelling [None]
  - Joint swelling [None]
  - Back disorder [None]
